FAERS Safety Report 9215517 (Version 4)
Quarter: 2014Q2

REPORT INFORMATION
  Report Type: Spontaneous
  Country: US (occurrence: US)
  Receive Date: 20130406
  Receipt Date: 20140410
  Transmission Date: 20141212
  Serious: Yes (Hospitalization, Other)
  Sender: FDA-Public Use
  Company Number: US-B.I. PHARMACEUTICALS,INC./RIDGEFIELD-2013-BI-09310BP

PATIENT
  Age: 60 Year
  Sex: Male
  Weight: 72.6 kg

DRUGS (14)
  1. PRADAXA [Suspect]
     Indication: ATRIAL FIBRILLATION
     Dosage: 150 MG
     Route: 048
     Dates: start: 20111113, end: 20120128
  2. VITAMIN C [Concomitant]
     Dosage: 500 MG
     Route: 048
  3. CARVEDILOL [Concomitant]
     Route: 048
  4. DILTIAZEM [Concomitant]
     Route: 048
  5. FUROSEMIDE [Concomitant]
     Dosage: 40 MG
     Route: 048
  6. GABAPENTIN [Concomitant]
     Dosage: 900 MG
     Route: 048
  7. HYDROMORPHONE [Concomitant]
     Indication: PAIN
     Route: 048
  8. PANTOPRAZOLE [Concomitant]
     Dosage: 40 MG
     Route: 048
  9. RENVELA [Concomitant]
     Dosage: 2400 MG
     Route: 048
  10. TRAZODONE [Concomitant]
     Dosage: 100 MG
     Route: 048
  11. ZINC ACETATE [Concomitant]
     Dosage: 50 MG
     Route: 048
  12. LISINOPRIL [Concomitant]
     Route: 065
     Dates: start: 201106, end: 201206
  13. CARTIA [Concomitant]
     Route: 065
  14. FLOCONAZOLE [Concomitant]
     Route: 065

REACTIONS (7)
  - Upper gastrointestinal haemorrhage [Unknown]
  - Lower gastrointestinal haemorrhage [Unknown]
  - Renal haemorrhage [Unknown]
  - Pulmonary alveolar haemorrhage [Unknown]
  - Anaemia [Unknown]
  - Coagulopathy [Unknown]
  - Haemothorax [Unknown]
